FAERS Safety Report 4844575-7 (Version None)
Quarter: 2005Q4

REPORT INFORMATION
  Report Type: 
  Country: None (occurrence: None)
  Receive Date: 20051129
  Receipt Date: 20051117
  Transmission Date: 20060501
  Serious: Yes (Other)
  Sender: FDA-Public Use
  Company Number: 12899

PATIENT
  Sex: Female

DRUGS (3)
  1. VINBLASTINE SULFATE [Suspect]
     Indication: TERATOMA
  2. CISPLATIN [Concomitant]
  3. BLEOMYCIN [Concomitant]

REACTIONS (6)
  - ABORTION INCOMPLETE [None]
  - CONDITION AGGRAVATED [None]
  - HYPERTENSION [None]
  - LYMPHADENOPATHY [None]
  - PELVIC MASS [None]
  - REFUSAL OF TREATMENT BY PATIENT [None]
